FAERS Safety Report 6089531-9 (Version None)
Quarter: 2009Q1

REPORT INFORMATION
  Report Type: 
  Country: None (occurrence: None)
  Receive Date: 20090224
  Receipt Date: 20090218
  Transmission Date: 20090719
  Serious: Yes (Other)
  Sender: FDA-Public Use
  Company Number: SE-JNJFOC-20090205119

PATIENT
  Age: 63 Year
  Sex: Female

DRUGS (2)
  1. IPREN 400 MG [Suspect]
     Indication: INFLAMMATION
     Route: 048
  2. IPREN 400 MG [Suspect]
     Indication: BACK PAIN
     Route: 048

REACTIONS (1)
  - VITREOUS DETACHMENT [None]
